FAERS Safety Report 5669514-0 (Version None)
Quarter: 2008Q1

REPORT INFORMATION
  Report Type: 
  Country: None (occurrence: None)
  Receive Date: 20080317
  Receipt Date: 20080303
  Transmission Date: 20080703
  Serious: Yes (Other)
  Sender: FDA-Public Use
  Company Number: PHBS2008BR03253

PATIENT
  Age: 43 Year
  Sex: Female

DRUGS (2)
  1. CYCLOSPORINE [Suspect]
     Indication: BEHCET'S SYNDROME
  2. PREDNISONE TAB [Concomitant]
     Indication: BEHCET'S SYNDROME

REACTIONS (14)
  - AGGRESSION [None]
  - ASTHENIA [None]
  - BEHCET'S SYNDROME [None]
  - EYELID PTOSIS [None]
  - GLIOSIS [None]
  - HEADACHE [None]
  - HYPERPHAGIA [None]
  - MEMORY IMPAIRMENT [None]
  - MENTAL DISORDER [None]
  - PARESIS [None]
  - PHOTOPHOBIA [None]
  - PSYCHOTIC DISORDER DUE TO A GENERAL MEDICAL CONDITION [None]
  - SLEEP DISORDER [None]
  - SOMNOLENCE [None]
